FAERS Safety Report 12554848 (Version 1)
Quarter: 2016Q3

REPORT INFORMATION
  Report Type: Spontaneous
  Country: US (occurrence: US)
  Receive Date: 20160713
  Receipt Date: 20160713
  Transmission Date: 20161109
  Serious: Yes (Other)
  Sender: FDA-Public Use
  Company Number: US-BEH-2016071024

PATIENT
  Sex: Female
  Weight: 62.59 kg

DRUGS (15)
  1. LIDOCAINE. [Concomitant]
     Active Substance: LIDOCAINE
  2. VALIUM [Concomitant]
     Active Substance: DIAZEPAM
  3. SODIUM CHLORIDE. [Concomitant]
     Active Substance: SODIUM CHLORIDE
  4. EPIPEN [Concomitant]
     Active Substance: EPINEPHRINE
  5. OMEPRAZOLE. [Concomitant]
     Active Substance: OMEPRAZOLE
  6. TRAMADOL. [Concomitant]
     Active Substance: TRAMADOL
  7. SPIRIVA [Concomitant]
     Active Substance: TIOTROPIUM BROMIDE MONOHYDRATE
  8. ZEMAIRA [Suspect]
     Active Substance: .ALPHA.1-PROTEINASE INHIBITOR HUMAN
     Indication: ALPHA-1 ANTI-TRYPSIN DEFICIENCY
     Dosage: 60 MG/KG, QW
     Route: 042
     Dates: start: 20130206
  9. PROBIOTIC                          /06395501/ [Concomitant]
     Active Substance: BIFIDOBACTERIUM ANIMALIS SUBSP. LACTIS
  10. DIAZEPAM. [Concomitant]
     Active Substance: DIAZEPAM
  11. DIPHENHYDRAMINE. [Concomitant]
     Active Substance: DIPHENHYDRAMINE
  12. PROPRANOLOL [Concomitant]
     Active Substance: PROPRANOLOL\PROPRANOLOL HYDROCHLORIDE
  13. LORAZEPAM. [Concomitant]
     Active Substance: LORAZEPAM
  14. PROAIR HFA [Concomitant]
     Active Substance: ALBUTEROL SULFATE
  15. LIDOCAINE/PRILOCAINE [Concomitant]
     Active Substance: LIDOCAINE\PRILOCAINE

REACTIONS (4)
  - Homans^ sign positive [Unknown]
  - Nausea [Unknown]
  - Peripheral swelling [Unknown]
  - Dizziness [Unknown]
